FAERS Safety Report 12411035 (Version 1)
Quarter: 2016Q2

REPORT INFORMATION
  Report Type: Spontaneous
  Country: US (occurrence: None)
  Receive Date: 20160526
  Receipt Date: 20160526
  Transmission Date: 20160815
  Serious: Yes (Disabling)
  Sender: FDA-Public Use
  Company Number: None

PATIENT
  Age: 51 Year
  Sex: Female
  Weight: 88.45 kg

DRUGS (15)
  1. TIMODOL [Concomitant]
  2. VITAMIN D3 [Concomitant]
     Active Substance: CHOLECALCIFEROL
  3. LEVOTHYROXIN [Concomitant]
     Active Substance: LEVOTHYROXINE
  4. B-6 [Concomitant]
  5. MELOXICAM. [Suspect]
     Active Substance: MELOXICAM
     Indication: ARTHRITIS
     Route: 048
     Dates: start: 2006
  6. LISINOPRIL. [Concomitant]
     Active Substance: LISINOPRIL
  7. FISH OIL [Concomitant]
     Active Substance: FISH OIL
  8. COQ10 [Concomitant]
     Active Substance: UBIDECARENONE
  9. CALCIUM [Concomitant]
     Active Substance: CALCIUM
  10. BABY ASPIRIN [Concomitant]
     Active Substance: ASPIRIN
  11. MELOXICAM. [Concomitant]
     Active Substance: MELOXICAM
  12. SIMVASTATIN. [Concomitant]
     Active Substance: SIMVASTATIN
  13. DAILY VIT. [Concomitant]
  14. FIBER CAPSULES [Concomitant]
  15. ESTROULIN [Concomitant]

REACTIONS (2)
  - Arthralgia [None]
  - Musculoskeletal pain [None]

NARRATIVE: CASE EVENT DATE: 20160108
